FAERS Safety Report 8302777-1 (Version None)
Quarter: 2012Q2

REPORT INFORMATION
  Report Type: 
  Country: None (occurrence: None)
  Receive Date: 20120420
  Receipt Date: 20110426
  Transmission Date: 20120825
  Serious: No
  Sender: FDA-Public Use
  Company Number: US-PFIZER INC-K201100507

PATIENT
  Age: 39 Year
  Sex: Female
  Weight: 95.238 kg

DRUGS (1)
  1. AVINZA [Suspect]
     Indication: PAIN
     Dosage: 150 MG, QAM
     Route: 048

REACTIONS (1)
  - DRUG SCREEN POSITIVE [None]
